FAERS Safety Report 8210536-3 (Version None)
Quarter: 2012Q1

REPORT INFORMATION
  Report Type: 
  Country: None (occurrence: None)
  Receive Date: 20120314
  Receipt Date: 20110321
  Transmission Date: 20120608
  Serious: No
  Sender: FDA-Public Use
  Company Number: US-ASTRAZENECA-2011SE16155

PATIENT
  Age: 46 Year
  Sex: Female
  Weight: 81.2 kg

DRUGS (3)
  1. TOPROL-XL [Suspect]
     Route: 048
     Dates: start: 20101101
  2. TOPROL-XL [Suspect]
     Indication: HYPERTENSION
     Dosage: HALF TABLET EVERY DAY
     Route: 048
     Dates: start: 20030101, end: 20101101
  3. TOPROL-XL [Suspect]
     Dosage: HALF TABLET EVERY DAY
     Route: 048

REACTIONS (6)
  - HEART RATE DECREASED [None]
  - MUSCULAR WEAKNESS [None]
  - DIZZINESS [None]
  - HYPERTENSION [None]
  - GAIT DISTURBANCE [None]
  - WRONG TECHNIQUE IN DRUG USAGE PROCESS [None]
